FAERS Safety Report 5120835-X (Version None)
Quarter: 2006Q4

REPORT INFORMATION
  Report Type: 
  Country: None (occurrence: None)
  Receive Date: 20061003
  Receipt Date: 20061003
  Transmission Date: 20070319
  Serious: Yes (Other)
  Sender: FDA-Public Use
  Company Number: None

PATIENT
  Sex: Female
  Weight: 67.586 kg

DRUGS (10)
  1. HUMIRA [Suspect]
     Indication: RHEUMATOID ARTHRITIS
     Dosage: 40 MG Q 2 WKS SQ
     Route: 058
     Dates: start: 20050714, end: 20060823
  2. FOLATE [Concomitant]
  3. DARVOCET [Concomitant]
  4. CALCIUM GLUCONATE [Concomitant]
  5. LODINE [Concomitant]
  6. FLEXERIL [Concomitant]
  7. PROZAC [Concomitant]
  8. PLENDIL [Concomitant]
  9. METHOTREXATE [Concomitant]
  10. NEXIUM [Concomitant]

REACTIONS (1)
  - BREAST CANCER IN SITU [None]
